FAERS Safety Report 13430518 (Version 1)
Quarter: 2017Q2

REPORT INFORMATION
  Report Type: Spontaneous
  Country: US (occurrence: US)
  Receive Date: 20170411
  Receipt Date: 20170411
  Transmission Date: 20170830
  Serious: Yes (Hospitalization)
  Sender: FDA-Public Use
  Company Number: None

PATIENT
  Age: 68 Year
  Sex: Male

DRUGS (1)
  1. WARFARIN [Suspect]
     Active Substance: WARFARIN
     Dates: start: 20170113

REACTIONS (3)
  - Cardiac tamponade [None]
  - Anticoagulation drug level above therapeutic [None]
  - Pericardial haemorrhage [None]

NARRATIVE: CASE EVENT DATE: 20170113
